FAERS Safety Report 21396708 (Version 1)
Quarter: 2022Q3

REPORT INFORMATION
  Report Type: Spontaneous
  Country: US (occurrence: None)
  Receive Date: 20220930
  Receipt Date: 20220930
  Transmission Date: 20221027
  Serious: No
  Sender: FDA-Public Use
  Company Number: US-Spark Therapeutics, Inc.-US-SPK-21-00099

PATIENT
  Age: 50 Year
  Sex: Male

DRUGS (7)
  1. LUXTURNA [Suspect]
     Active Substance: VORETIGENE NEPARVOVEC-RZYL
     Indication: Leber^s congenital amaurosis
     Dosage: 0.3 CC
     Dates: start: 20211025, end: 20211025
  2. LUXTURNA [Suspect]
     Active Substance: VORETIGENE NEPARVOVEC-RZYL
     Dosage: 0.3 CC
     Dates: start: 20211129, end: 20211129
  3. LUXTURNA [Suspect]
     Active Substance: VORETIGENE NEPARVOVEC-RZYL
     Indication: Leber^s congenital amaurosis
     Dates: start: 20211025, end: 20211025
  4. LUXTURNA [Suspect]
     Active Substance: VORETIGENE NEPARVOVEC-RZYL
     Dates: start: 20211129, end: 20211129
  5. SINGULAIR [Concomitant]
     Active Substance: MONTELUKAST SODIUM
     Indication: Product used for unknown indication
  6. NAPROXEN [Concomitant]
     Active Substance: NAPROXEN
     Indication: Product used for unknown indication
  7. PREDNISONE [Concomitant]
     Active Substance: PREDNISONE
     Indication: Product used for unknown indication

REACTIONS (2)
  - Vitreous haemorrhage [Recovered/Resolved]
  - Intra-ocular injection complication [Recovered/Resolved]

NARRATIVE: CASE EVENT DATE: 20211025
